FAERS Safety Report 9969742 (Version 3)
Quarter: 2014Q3

REPORT INFORMATION
  Report Type: Report from Study
  Country: FR (occurrence: FR)
  Receive Date: 20140306
  Receipt Date: 20140701
  Transmission Date: 20150326
  Serious: Yes (Death)
  Sender: FDA-Public Use
  Company Number: FR-ROCHE-1359546

PATIENT
  Sex: Male

DRUGS (4)
  1. FOLINIC ACID [Suspect]
     Active Substance: LEUCOVORIN
     Indication: COLORECTAL CANCER METASTATIC
     Dosage: DATE OF LAST DOSE OF CALCIUM FOLINATE: 17/FEB/2014 AT DOSE: 780MG,
     Route: 065
  2. IRINOTECAN [Suspect]
     Active Substance: IRINOTECAN
     Indication: COLORECTAL CANCER METASTATIC
     Dosage: DATE OF LAST DOSE OF IRINOTECAN: 17/FEB/2014 AT 350 MG
     Route: 065
  3. 5-FU [Suspect]
     Active Substance: FLUOROURACIL
     Indication: COLORECTAL CANCER METASTATIC
     Dosage: DOSE: 800MG IN BOLUS AND 4700MG AS CONTINUOUS DOSING, DATE OF LAST DOSE OF FLUOROURACIL: 17/FEB/2014
     Route: 065
  4. BEVACIZUMAB [Suspect]
     Active Substance: BEVACIZUMAB
     Indication: COLORECTAL CANCER METASTATIC
     Dosage: DATE OF LAST DOSE OF BEVACIZUMAB: 17/FEB/2014 AT 425 MG
     Route: 065

REACTIONS (1)
  - Tachypnoea [Fatal]

NARRATIVE: CASE EVENT DATE: 20140223
